FAERS Safety Report 8371065-X (Version None)
Quarter: 2012Q2

REPORT INFORMATION
  Report Type: 
  Country: None (occurrence: None)
  Receive Date: 20120518
  Receipt Date: 20110519
  Transmission Date: 20120825
  Serious: No
  Sender: FDA-Public Use
  Company Number: US-BRISTOL-MYERS SQUIBB COMPANY-15759129

PATIENT
  Age: 82 Year
  Sex: Female

DRUGS (1)
  1. BARACLUDE [Suspect]
     Indication: HEPATITIS B
     Dates: start: 20110501

REACTIONS (3)
  - FATIGUE [None]
  - DYSPNOEA [None]
  - ABDOMINAL PAIN UPPER [None]
